FAERS Safety Report 17266289 (Version 1)
Quarter: 2020Q1

REPORT INFORMATION
  Report Type: Spontaneous
  Country: GB (occurrence: GB)
  Receive Date: 20200114
  Receipt Date: 20200114
  Transmission Date: 20200409
  Serious: Yes (Life-Threatening, Hospitalization, Other)
  Sender: FDA-Public Use
  Company Number: GB-LUPIN PHARMACEUTICALS INC.-2020-00020

PATIENT
  Age: 3 Decade
  Sex: Male

DRUGS (3)
  1. PERAMPANEL [Suspect]
     Active Substance: PERAMPANEL
     Indication: SUICIDE ATTEMPT
     Dosage: 42 MILLIGRAM, SINGLE
     Route: 048
  2. LEVOTHYROXINE. [Suspect]
     Active Substance: LEVOTHYROXINE
     Indication: SUICIDE ATTEMPT
     Dosage: 200 MICROGRAM, SINGLE
     Route: 048
  3. PREGABALIN. [Suspect]
     Active Substance: PREGABALIN
     Indication: SUICIDE ATTEMPT
     Dosage: 300 MILLIGRAM, SINGLE
     Route: 048

REACTIONS (7)
  - Pneumonia aspiration [Recovering/Resolving]
  - Agitation [Recovering/Resolving]
  - Suicide attempt [Unknown]
  - Loss of consciousness [Recovered/Resolved]
  - Intentional overdose [Unknown]
  - Acute respiratory distress syndrome [Recovering/Resolving]
  - Stupor [Recovering/Resolving]
